FAERS Safety Report 14205743 (Version 2)
Quarter: 2017Q4

REPORT INFORMATION
  Report Type: Report from Study
  Country: US (occurrence: US)
  Receive Date: 20171120
  Receipt Date: 20171213
  Transmission Date: 20180321
  Serious: Yes (Hospitalization, Other)
  Sender: FDA-Public Use
  Company Number: US-GILEAD-2017-0305462

PATIENT
  Age: 60 Year
  Sex: Male

DRUGS (2)
  1. RANOLAZINE. [Suspect]
     Active Substance: RANOLAZINE
     Dosage: HAS CUT PILLS IN HALF
     Route: 048
     Dates: start: 2013
  2. RANOLAZINE. [Suspect]
     Active Substance: RANOLAZINE
     Indication: ANGINA PECTORIS
     Dosage: 1000 MG, UNK
     Route: 048
     Dates: start: 2015

REACTIONS (3)
  - Coronary arterial stent insertion [Unknown]
  - Wrong technique in product usage process [Unknown]
  - Atrioventricular block [Unknown]

NARRATIVE: CASE EVENT DATE: 201711
